FAERS Safety Report 9432155 (Version 3)
Quarter: 2013Q3

REPORT INFORMATION
  Report Type: Spontaneous
  Country: US (occurrence: US)
  Receive Date: 20130731
  Receipt Date: 20130821
  Transmission Date: 20140515
  Serious: Yes (Death, Hospitalization)
  Sender: FDA-Public Use
  Company Number: US-BAYER-2013-091994

PATIENT
  Age: 65 Year
  Sex: Female

DRUGS (1)
  1. STIVARGA [Suspect]
     Indication: COLORECTAL CANCER
     Dosage: 160 MG, UNK

REACTIONS (3)
  - Colon cancer [Fatal]
  - Diarrhoea [Recovered/Resolved]
  - Palmar-plantar erythrodysaesthesia syndrome [None]
